FAERS Safety Report 5234292-6 (Version None)
Quarter: 2007Q1

REPORT INFORMATION
  Report Type: 
  Country: None (occurrence: None)
  Receive Date: 20070209
  Receipt Date: 20070202
  Transmission Date: 20070707
  Serious: Yes (Hospitalization)
  Sender: FDA-Public Use
  Company Number: JP-AVENTIS-200710262JP

PATIENT

DRUGS (4)
  1. AMARYL [Suspect]
  2. PLETAL [Suspect]
  3. ADALAT [Concomitant]
  4. HARNAL [Concomitant]

REACTIONS (1)
  - PULMONARY OEDEMA [None]
